FAERS Safety Report 4393894-X (Version None)
Quarter: 2004Q3

REPORT INFORMATION
  Report Type: 
  Country: None (occurrence: None)
  Receive Date: 20040702
  Receipt Date: 20040621
  Transmission Date: 20050211
  Serious: Yes (Hospitalization)
  Sender: FDA-Public Use
  Company Number: 04P-163-0264344-00

PATIENT
  Age: 85 Year
  Sex: Female

DRUGS (3)
  1. SEVOFLURANE [Suspect]
     Indication: ANAESTHESIA
     Dosage: ONCE, INHALATION
     Route: 055
     Dates: start: 20040608, end: 20040608
  2. FAMOTIDINE [Concomitant]
  3. METOPROLOL [Concomitant]

REACTIONS (3)
  - HEPATITIS [None]
  - LEUKOPENIA [None]
  - PYREXIA [None]
